FAERS Safety Report 21079075 (Version 1)
Quarter: 2022Q3

REPORT INFORMATION
  Report Type: Spontaneous
  Country: US (occurrence: US)
  Receive Date: 20220713
  Receipt Date: 20220713
  Transmission Date: 20221026
  Serious: No
  Sender: FDA-Public Use
  Company Number: US-AMGEN-USASP2022117260

PATIENT
  Age: 63 Year
  Sex: Female

DRUGS (8)
  1. ENBREL [Suspect]
     Active Substance: ETANERCEPT
     Indication: Body mass index
     Dosage: 50 MILLIGRAM, QWK
     Route: 058
     Dates: start: 20190619
  2. TRAMADOL HCL [Concomitant]
     Active Substance: TRAMADOL HYDROCHLORIDE
     Dosage: UNK
  3. FOLIC ACID [Concomitant]
     Active Substance: FOLIC ACID
     Dosage: 1 MILLIGRAM
  4. HYDROXYZINE [Concomitant]
     Active Substance: HYDROXYZINE HYDROCHLORIDE
     Dosage: 50 MILLIGRAM
  5. METHOTREXATE [Concomitant]
     Active Substance: METHOTREXATE
     Dosage: SOL 50 MG/2ML
  6. NABUMETONE [Concomitant]
     Active Substance: NABUMETONE
     Dosage: 500 MILLIGRAM
  7. RESTASIS [Concomitant]
     Active Substance: CYCLOSPORINE
     Dosage: 0.05 PERCENT
  8. VALSARTAN [Concomitant]
     Active Substance: VALSARTAN
     Dosage: 320-25 MG

REACTIONS (2)
  - Intentional product misuse [Unknown]
  - Off label use [Unknown]

NARRATIVE: CASE EVENT DATE: 20190619
